FAERS Safety Report 8243102-4 (Version None)
Quarter: 2012Q1

REPORT INFORMATION
  Report Type: 
  Country: None (occurrence: None)
  Receive Date: 20120329
  Receipt Date: 20110912
  Transmission Date: 20120608
  Serious: No
  Sender: FDA-Public Use
  Company Number: US-MYLANLABS-2011S1019229

PATIENT
  Age: 91 Year
  Sex: Female

DRUGS (1)
  1. ALBUTEROL SULATE [Suspect]

REACTIONS (1)
  - CHEST PAIN [None]
